FAERS Safety Report 11272499 (Version 1)
Quarter: 2015Q3

REPORT INFORMATION
  Report Type: Spontaneous
  Country: IT (occurrence: IT)
  Receive Date: 20150715
  Receipt Date: 20150715
  Transmission Date: 20151125
  Serious: Yes (Other)
  Sender: FDA-Public Use
  Company Number: IT-ACTAVIS-2015-14536

PATIENT
  Age: 43 Year
  Sex: Male

DRUGS (3)
  1. OXALIPLATINO SUN [Suspect]
     Active Substance: OXALIPLATIN
     Indication: PANCREATIC CARCINOMA
     Dosage: 150 MG, CYCLICAL
     Route: 042
     Dates: start: 20150309, end: 20150707
  2. IRINOTECAN (UNKNOWN) [Suspect]
     Active Substance: IRINOTECAN
     Indication: PANCREATIC CARCINOMA
     Dosage: 300 MG, CYCLICAL
     Route: 042
     Dates: start: 20150309, end: 20150707
  3. FLUOROURACIL. [Suspect]
     Active Substance: FLUOROURACIL
     Indication: PANCREATIC CARCINOMA
     Dosage: 3800 MG, CYCLICAL
     Route: 041
     Dates: start: 20150309, end: 20150707

REACTIONS (2)
  - Neutropenia [Unknown]
  - Thrombocytopenia [Unknown]

NARRATIVE: CASE EVENT DATE: 20150707
